FAERS Safety Report 23921834 (Version 2)
Quarter: 2024Q3

REPORT INFORMATION
  Report Type: Spontaneous
  Country: JP (occurrence: JP)
  Receive Date: 20240530
  Receipt Date: 20240712
  Transmission Date: 20241016
  Serious: Yes (Hospitalization)
  Sender: ABBVIE
  Company Number: JP-ABBVIE-5780162

PATIENT
  Age: 15 Year
  Sex: Female
  Weight: 45 kg

DRUGS (9)
  1. RINVOQ [Suspect]
     Active Substance: UPADACITINIB
     Indication: Dermatitis atopic
     Dosage: LAST ADMIN DATE: 2024?FORM STRENGTH: 30 MILLIGRAMS
     Route: 048
     Dates: start: 20240403
  2. RINVOQ [Suspect]
     Active Substance: UPADACITINIB
     Indication: Dermatitis atopic
     Dosage: 30 MILLIGRAM
     Route: 048
     Dates: start: 20240208, end: 20240327
  3. RINVOQ [Suspect]
     Active Substance: UPADACITINIB
     Indication: Dermatitis atopic
     Dosage: 15 MILLIGRAM
     Route: 048
     Dates: start: 20231117
  4. DESLORATADINE [Concomitant]
     Active Substance: DESLORATADINE
     Indication: Product used for unknown indication
     Dosage: FORM STRENGTH: 5 MILLIGRAM
     Route: 048
     Dates: start: 20230304
  5. BEPOTASTINE BESYLATE [Concomitant]
     Active Substance: BEPOTASTINE BESYLATE
     Indication: Product used for unknown indication
     Dosage: FORM STRENGTH: 10 MILLIGRAMS
     Route: 048
     Dates: start: 20200425
  6. HEPARINOID [Concomitant]
     Indication: Product used for unknown indication
     Dosage: FORM STRENGTH: 0.3 PERCENT
     Route: 062
     Dates: start: 20160205
  7. PROTOPIC [Concomitant]
     Active Substance: TACROLIMUS
     Indication: Product used for unknown indication
     Dosage: FORM STRENGTH: 0.1 PERCENT
     Route: 062
     Dates: start: 20240222
  8. BETAMETHASONE [Concomitant]
     Active Substance: BETAMETHASONE\BETAMETHASONE DIPROPIONATE
     Indication: Product used for unknown indication
     Dosage: FORM STRENGTH: 0.12 PERCENT
     Route: 062
     Dates: start: 20181012
  9. MONTELUKAST SODIUM [Concomitant]
     Active Substance: MONTELUKAST SODIUM
     Indication: Product used for unknown indication
     Dosage: FORM STRENGTH: 5 MILLIGRAMS
     Route: 048
     Dates: start: 20230304

REACTIONS (7)
  - Influenza [Recovered/Resolved]
  - Pruritus [Recovered/Resolved]
  - Pruritus [Unknown]
  - Upper respiratory tract inflammation [Recovered/Resolved]
  - Papule [Unknown]
  - Immunodeficiency [Unknown]
  - Erythema [Unknown]

NARRATIVE: CASE EVENT DATE: 20240201
